FAERS Safety Report 9146310 (Version 1)
Quarter: 2013Q1

REPORT INFORMATION
  Report Type: Spontaneous
  Country: US (occurrence: None)
  Receive Date: 20130214
  Receipt Date: 20130214
  Transmission Date: 20140127
  Serious: Yes (Death)
  Sender: FDA-Public Use
  Company Number: 2013010183

PATIENT
  Age: 60 Year
  Sex: Female

DRUGS (12)
  1. HYOSCYAMINE (HYOSCYAMINE) [Suspect]
     Indication: COMPLETED SUICIDE
     Route: 048
  2. ZOLPIDEM [Suspect]
     Route: 048
  3. TIZANIDINE [Suspect]
     Route: 048
  4. AMLODIPINE (AMLODIPINE) [Suspect]
     Route: 048
  5. ARIPIPRAZOLE (ARIPIPRAZOLE) [Suspect]
     Route: 048
  6. HYDROCODONE [Suspect]
  7. OXYCODONE (OXYCODONE) [Suspect]
  8. FLUOXETINE [Suspect]
  9. HYDROCHLOROTHIAZIDE (HYDROCHLOROTHIAZIDE) [Suspect]
  10. SIMVASTATIN (SIMVASTATIN) [Suspect]
  11. SUMATRIPTAN [Suspect]
     Route: 048
  12. ACETAMINOPHEN [Suspect]

REACTIONS (3)
  - Respiratory arrest [None]
  - Cardiac arrest [None]
  - Completed suicide [None]
